FAERS Safety Report 7264511-6 (Version None)
Quarter: 2011Q1

REPORT INFORMATION
  Report Type: 
  Country: None (occurrence: None)
  Receive Date: 20110131
  Receipt Date: 20110125
  Transmission Date: 20110831
  Serious: Yes (Hospitalization, Other)
  Sender: FDA-Public Use
  Company Number: US-PFIZER INC-2010116082

PATIENT
  Sex: Male

DRUGS (13)
  1. METOPROLOL [Concomitant]
     Indication: HYPERTENSION
     Dosage: UNK
     Dates: start: 19930101
  2. FENTANYL [Concomitant]
     Indication: BACK PAIN
     Dosage: UNK
     Dates: start: 20060101
  3. ACETYLSALICYLIC ACID [Concomitant]
     Indication: CARDIAC DISORDER
     Dosage: UNK
     Dates: start: 19930101
  4. CHANTIX [Suspect]
     Indication: SMOKING CESSATION THERAPY
     Dosage: UNK
     Dates: start: 20071004, end: 20071207
  5. PLAVIX [Concomitant]
     Indication: CARDIAC DISORDER
     Dosage: UNK
     Dates: start: 19930101
  6. LASIX [Concomitant]
     Indication: CARDIAC DISORDER
     Dosage: UNK
     Dates: start: 19930101
  7. LACTULOSE [Concomitant]
     Indication: HEPATITIS C
     Dosage: UNK
     Dates: start: 19930101
  8. NEXIUM [Concomitant]
     Indication: GASTROOESOPHAGEAL REFLUX DISEASE
     Dosage: UNK
     Dates: start: 20070101
  9. XANAX [Concomitant]
     Indication: DEPRESSION
     Dosage: UNK
     Dates: start: 19930101
  10. CHANTIX [Suspect]
     Dosage: UNK
     Dates: start: 20080727, end: 20080918
  11. LOPRESSOR [Concomitant]
     Indication: HYPERTENSION
     Dosage: UNK
     Dates: start: 20040101
  12. VASOTEC [Concomitant]
     Indication: HYPERTENSION
     Dosage: UNK
     Dates: start: 20040101
  13. NEURONTIN [Concomitant]
     Indication: PAIN
     Dosage: UNK
     Dates: start: 20070101

REACTIONS (3)
  - SUICIDE ATTEMPT [None]
  - DEPRESSION [None]
  - ANXIETY [None]
